FAERS Safety Report 11859913 (Version 3)
Quarter: 2016Q1

REPORT INFORMATION
  Report Type: Spontaneous
  Country: US (occurrence: US)
  Receive Date: 20151222
  Receipt Date: 20160302
  Transmission Date: 20160526
  Serious: Yes (Hospitalization)
  Sender: FDA-Public Use
  Company Number: US-PFIZER INC-2015437338

PATIENT
  Age: 73 Year
  Sex: Female
  Weight: 56 kg

DRUGS (5)
  1. DOCUSATE SODIUM. [Concomitant]
     Active Substance: DOCUSATE SODIUM
     Dosage: 100 MG, UNK
     Dates: start: 20151102
  2. SUTENT [Suspect]
     Active Substance: SUNITINIB MALATE
     Indication: CLEAR CELL RENAL CELL CARCINOMA
     Dosage: 37.5 MG, CYCLIC  (1 DAILY FOR 28 DAYS, THEN OFF FOR 2 WEEKS)
     Route: 048
     Dates: start: 201511
  3. NIFEDIPINE ER [Concomitant]
     Active Substance: NIFEDIPINE
     Indication: HYPERTENSION
     Dosage: 60 MG, DAILY
     Route: 048
  4. IRON [Concomitant]
     Active Substance: IRON
     Dosage: 65 MG, UNK
     Dates: start: 201507
  5. ATENOLOL. [Concomitant]
     Active Substance: ATENOLOL
     Indication: HYPERTENSION
     Dosage: 100 MG, DAILY
     Route: 048

REACTIONS (11)
  - Decreased appetite [Not Recovered/Not Resolved]
  - Dry mouth [Not Recovered/Not Resolved]
  - Dry skin [Not Recovered/Not Resolved]
  - Insomnia [Unknown]
  - Epistaxis [Recovered/Resolved]
  - Nausea [Not Recovered/Not Resolved]
  - Dysgeusia [Not Recovered/Not Resolved]
  - Oral mucosal blistering [Unknown]
  - Blister [Unknown]
  - Flatulence [Unknown]
  - Hyperaesthesia [Unknown]

NARRATIVE: CASE EVENT DATE: 201511
